FAERS Safety Report 23524796 (Version 1)
Quarter: 2024Q1

REPORT INFORMATION
  Report Type: 
  Country: None (occurrence: None)
  Receive Date: 20240215
  Receipt Date: 20240215
  Transmission Date: 20240409
  Serious: No
  Sender: FDA-Public Use
  Company Number: DE-ROCHE-2126374

PATIENT
  Weight: 70 kg

DRUGS (26)
  1. OCREVUS [Suspect]
     Active Substance: OCRELIZUMAB
     Dosage: SECOND INFUSION ON 22/MAY/2018
     Dates: start: 20180508, end: 201805
  2. OCREVUS [Suspect]
     Active Substance: OCRELIZUMAB
     Dates: start: 20181126
  3. OCREVUS [Suspect]
     Active Substance: OCRELIZUMAB
     Dates: start: 20190605
  4. OCREVUS [Suspect]
     Active Substance: OCRELIZUMAB
     Dates: start: 20180522
  5. OCREVUS [Suspect]
     Active Substance: OCRELIZUMAB
     Dates: start: 202006
  6. OCREVUS [Suspect]
     Active Substance: OCRELIZUMAB
     Dates: start: 20210604
  7. OCREVUS [Suspect]
     Active Substance: OCRELIZUMAB
     Dates: start: 20181126
  8. OCREVUS [Suspect]
     Active Substance: OCRELIZUMAB
     Dates: start: 20190506
  9. OCREVUS [Suspect]
     Active Substance: OCRELIZUMAB
     Dates: start: 20180518
  10. COMIRNATY (TOZINAMERAN) [Suspect]
     Active Substance: TOZINAMERAN
  11. LYRICA [Suspect]
     Active Substance: PREGABALIN
     Dosage: 250 MG, DAILY (100MG IN THE MORNING-0-150MG IN THE EVENING)
  12. LYRICA [Suspect]
     Active Substance: PREGABALIN
     Dosage: 200 MG, DAILY (IN THE MORNING 75 MG, 125 MG IN THE EVENING)
     Dates: start: 20190308
  13. LYRICA [Suspect]
     Active Substance: PREGABALIN
     Dosage: 125 MG DAILY (50 MG IN THE MORNING, 75 MG IN THE EVENING)
  14. LYRICA [Suspect]
     Active Substance: PREGABALIN
     Dosage: 25 MG IN THE MORNING, 75 MG IN THE EVENING
     Dates: start: 2019
  15. LYRICA [Suspect]
     Active Substance: PREGABALIN
  16. LYRICA [Suspect]
     Active Substance: PREGABALIN
     Dates: start: 2019, end: 2019
  17. LYRICA [Suspect]
     Active Substance: PREGABALIN
  18. BACLOFEN [Concomitant]
     Active Substance: BACLOFEN
     Dosage: 0-0-1
  19. LEVOTHYROXINE [Concomitant]
     Active Substance: LEVOTHYROXINE\LEVOTHYROXINE SODIUM
     Dosage: 1-0-0
  20. CARVEDILOL [Concomitant]
     Active Substance: CARVEDILOL
     Dosage: 1-0-0
  21. CARVEDILOL [Concomitant]
     Active Substance: CARVEDILOL
     Dosage: IN THE MORNING
  22. CARVEDILOL [Concomitant]
     Active Substance: CARVEDILOL
  23. PARACODIN [Concomitant]
  24. NORSPAN [Concomitant]
     Active Substance: BUPRENORPHINE
     Dosage: WEEKLY REPLACEMENT?(PAIN PATCH; CHANGED 1X WEEKLY)
  25. OXCARBAZEPINE [Concomitant]
     Active Substance: OXCARBAZEPINE
     Dosage: 1-0-1
  26. OXCARBAZEPINE [Concomitant]
     Active Substance: OXCARBAZEPINE
     Dosage: 150 MG-0-100 MG

REACTIONS (57)
  - Bladder disorder [None]
  - Skin papilloma [None]
  - Gait disturbance [None]
  - Eczema [None]
  - Weight increased [None]
  - Dental fistula [None]
  - Back pain [None]
  - Hypersensitivity [None]
  - Hypotension [None]
  - Neuralgia [None]
  - Musculoskeletal chest pain [None]
  - Dysuria [None]
  - Menstruation delayed [None]
  - Abdominal pain upper [None]
  - Fatigue [None]
  - Tooth fracture [None]
  - Asthenia [None]
  - Neutrophil count increased [None]
  - SARS-CoV-2 antibody test negative [None]
  - Tooth dislocation [None]
  - Ovarian adenoma [None]
  - Multiple sclerosis relapse [None]
  - Abscess [None]
  - Chest pain [None]
  - Viral titre decreased [None]
  - Sensory disturbance [None]
  - Abscess oral [None]
  - Agitation [None]
  - Blood cholesterol increased [None]
  - Automatic bladder [None]
  - Renal cyst [None]
  - Drug ineffective [None]
  - Atrioventricular block [None]
  - Auditory disorder [None]
  - Lipoedema [None]
  - Trigeminal neuralgia [None]
  - Hordeolum [None]
  - Paralysis [None]
  - Nausea [None]
  - Oedema [None]
  - Mitral valve incompetence [None]
  - Multiple sclerosis [None]
  - Fluid retention [None]
  - Lymphocyte count decreased [None]
  - Pulpitis dental [None]
  - Eosinophilic oesophagitis [None]
  - Lymphoedema [None]
  - Vocal cord inflammation [None]
  - Blood blister [None]
  - Vascular calcification [None]
  - Neurodermatitis [None]
  - Fatigue [None]
  - B-lymphocyte count decreased [None]
  - Optic neuritis [None]
  - Oesophageal pain [None]
  - Paraesthesia [None]
  - COVID-19 [None]

NARRATIVE: CASE EVENT DATE: 20180508
